FAERS Safety Report 5194269-6 (Version None)
Quarter: 2006Q4

REPORT INFORMATION
  Report Type: 
  Country: None (occurrence: None)
  Receive Date: 20061228
  Receipt Date: 20061003
  Transmission Date: 20070319
  Serious: Yes (Death, Hospitalization)
  Sender: FDA-Public Use
  Company Number: TH-ABBOTT-06P-155-0345612-00

PATIENT
  Sex: Male
  Weight: 48 kg

DRUGS (2)
  1. KALETRA [Suspect]
     Indication: SYSTEMIC ANTIVIRAL TREATMENT
     Dosage: DAILY DOSE: 800/200MG
     Route: 048
     Dates: start: 20060824, end: 20061213
  2. FLUCONAZOLE [Concomitant]
     Indication: MENINGITIS CRYPTOCOCCAL
     Route: 048

REACTIONS (8)
  - ASPERGILLOSIS [None]
  - BONE EROSION [None]
  - DEPRESSED LEVEL OF CONSCIOUSNESS [None]
  - GANGRENE [None]
  - HEADACHE [None]
  - PERIORBITAL CELLULITIS [None]
  - SINUSITIS [None]
  - SUBARACHNOID HAEMORRHAGE [None]
